FAERS Safety Report 12169300 (Version 2)
Quarter: 2016Q2

REPORT INFORMATION
  Report Type: Spontaneous
  Country: JP (occurrence: JP)
  Receive Date: 20160310
  Receipt Date: 20160407
  Transmission Date: 20160815
  Serious: Yes (Disabling, Other)
  Sender: FDA-Public Use
  Company Number: JP-BAYER-2016-043215

PATIENT
  Age: 79 Year
  Sex: Male
  Weight: 40 kg

DRUGS (2)
  1. WARFARIN [Suspect]
     Active Substance: WARFARIN
     Indication: CORONARY ARTERY BYPASS
     Dosage: 2MG OR 3 MG, QD
     Route: 048
     Dates: start: 2006, end: 20150917
  2. BAYASPIRIN [Suspect]
     Active Substance: ASPIRIN
     Indication: CORONARY ARTERIAL STENT INSERTION
     Dosage: 100 MG, QD
     Route: 048
     Dates: start: 2006, end: 20150917

REACTIONS (3)
  - Cerebral ventricular rupture [None]
  - Labelled drug-drug interaction medication error [None]
  - Thalamus haemorrhage [Recovered/Resolved with Sequelae]

NARRATIVE: CASE EVENT DATE: 20150918
